FAERS Safety Report 6114453-4 (Version None)
Quarter: 2009Q1

REPORT INFORMATION
  Report Type: 
  Country: None (occurrence: None)
  Receive Date: 20090313
  Receipt Date: 20090306
  Transmission Date: 20090719
  Serious: Yes (Death, Hospitalization)
  Sender: FDA-Public Use
  Company Number: PHHY2009JP06105

PATIENT
  Age: 36 Year
  Sex: Male

DRUGS (7)
  1. NEORAL [Suspect]
     Indication: RENAL TRANSPLANT
     Dosage: 240 MG/DAY
     Route: 048
     Dates: start: 20071023, end: 20071211
  2. SIMULECT [Suspect]
     Indication: RENAL TRANSPLANT
     Dosage: 40 MG, ONCE/SINGLE
     Route: 042
     Dates: start: 20071023, end: 20071023
  3. SIMULECT [Suspect]
     Dosage: 40 MG, ONCE/SINGLE
     Route: 042
     Dates: start: 20071027, end: 20071027
  4. MYCOPHENOLATE MOFETIL [Concomitant]
     Indication: RENAL TRANSPLANT
     Dosage: 1500 MG
     Route: 048
     Dates: start: 20071023, end: 20071211
  5. PREDNISOLONE [Concomitant]
     Indication: RENAL TRANSPLANT
  6. BASILIXIMAB [Concomitant]
  7. MEDROL [Concomitant]
     Indication: RENAL TRANSPLANT
     Dosage: 8 MG
     Route: 048
     Dates: start: 20071023, end: 20071211

REACTIONS (5)
  - BLOOD CREATININE INCREASED [None]
  - BRUGADA SYNDROME [None]
  - NEPHROPATHY TOXIC [None]
  - RESUSCITATION [None]
  - VENTRICULAR FIBRILLATION [None]
